FAERS Safety Report 16209607 (Version 1)
Quarter: 2019Q2

REPORT INFORMATION
  Report Type: Spontaneous
  Country: US (occurrence: US)
  Receive Date: 20190417
  Receipt Date: 20190417
  Transmission Date: 20190711
  Serious: No
  Sender: FDA-Public Use
  Company Number: US-EISAI MEDICAL RESEARCH-EC-2019-054717

PATIENT
  Age: 34 Year
  Sex: Male

DRUGS (3)
  1. COCAINE HYDROCHLORIDE. [Suspect]
     Active Substance: COCAINE HYDROCHLORIDE
     Dosage: 0.23 MG/KG WITH UNKNOWN FREQUENCY
     Route: 040
  2. COCAINE HYDROCHLORIDE. [Suspect]
     Active Substance: COCAINE HYDROCHLORIDE
     Indication: DRUG ABUSE
     Dosage: DOSE AND FREQUENCY UNKNOWN
     Route: 065
  3. LORCASERIN [Suspect]
     Active Substance: LORCASERIN HYDROCHLORIDE
     Indication: DRUG ABUSE
     Route: 048

REACTIONS (2)
  - Eructation [Recovered/Resolved]
  - Chest discomfort [Recovered/Resolved]
